FAERS Safety Report 25862257 (Version 1)
Quarter: 2025Q3

REPORT INFORMATION
  Report Type: Spontaneous
  Country: JP (occurrence: JP)
  Receive Date: 20250930
  Receipt Date: 20250930
  Transmission Date: 20251020
  Serious: Yes (Other)
  Sender: Vantive US Healthcare
  Company Number: JP-VANTIVE-2025VAN004413

PATIENT
  Age: 6 Decade
  Sex: Male

DRUGS (1)
  1. EXTRANEAL [Suspect]
     Active Substance: CALCIUM CHLORIDE\ICODEXTRIN\MAGNESIUM CHLORIDE\SODIUM CHLORIDE\SODIUM LACTATE
     Indication: End stage renal disease
     Route: 033
     Dates: start: 202509, end: 202509

REACTIONS (3)
  - Umbilical hernia [Not Recovered/Not Resolved]
  - Intra-abdominal pressure increased [Unknown]
  - Inadequate peritoneal dialysis [Unknown]
